FAERS Safety Report 20226599 (Version 1)
Quarter: 2021Q4

REPORT INFORMATION
  Report Type: Spontaneous
  Country: FR (occurrence: FR)
  Receive Date: 20211224
  Receipt Date: 20211224
  Transmission Date: 20220303
  Serious: Yes (Hospitalization, Other)
  Sender: FDA-Public Use
  Company Number: None

PATIENT
  Age: 71 Year
  Sex: Male

DRUGS (1)
  1. RIFAMPIN [Suspect]
     Active Substance: RIFAMPIN
     Indication: Intervertebral discitis
     Dosage: 1200 MG, QD
     Route: 048
     Dates: start: 20210827, end: 20210913

REACTIONS (3)
  - Hyperbilirubinaemia [Recovered/Resolved]
  - Mixed liver injury [Recovered/Resolved]
  - Vomiting [Recovered/Resolved]
